FAERS Safety Report 7429502-0 (Version None)
Quarter: 2011Q2

REPORT INFORMATION
  Report Type: 
  Country: None (occurrence: None)
  Receive Date: 20110418
  Receipt Date: 20110418
  Transmission Date: 20111010
  Serious: Yes (Hospitalization, Other)
  Sender: FDA-Public Use
  Company Number: None

PATIENT
  Age: 54 Year
  Sex: Female
  Weight: 103.4201 kg

DRUGS (3)
  1. CYMBALTA [Suspect]
     Indication: DEPRESSION
     Dosage: 30 MG 1 DAY
     Dates: start: 20110201, end: 20110418
  2. CYMBALTA [Suspect]
     Indication: FIBROMYALGIA
     Dosage: 30 MG 1 DAY
     Dates: start: 20110201, end: 20110418
  3. COUMADIN [Suspect]
     Indication: THROMBOSIS
     Dosage: 3 MG 1 DAY
     Dates: start: 20100601, end: 20110418

REACTIONS (6)
  - HAEMATEMESIS [None]
  - THROMBOSIS [None]
  - MUSCULOSKELETAL STIFFNESS [None]
  - PAIN IN EXTREMITY [None]
  - INTERNATIONAL NORMALISED RATIO FLUCTUATION [None]
  - BLOOD URINE [None]
